FAERS Safety Report 9456979 (Version 1)
Quarter: 2013Q3

REPORT INFORMATION
  Report Type: Report from Study
  Country: JP (occurrence: JP)
  Receive Date: 20130814
  Receipt Date: 20130814
  Transmission Date: 20140515
  Serious: Yes (Other)
  Sender: FDA-Public Use
  Company Number: JP-ROCHE-1260192

PATIENT
  Age: 67 Year
  Sex: Male
  Weight: 77 kg

DRUGS (6)
  1. ALTEPLASE [Suspect]
     Indication: EMBOLIC STROKE
     Dosage: DATE OF LAST DOSE PRIOR TO SAE: 20/MAY/2013
     Route: 042
     Dates: start: 20130520
  2. RADICUT [Concomitant]
     Route: 065
     Dates: start: 20130520, end: 20130526
  3. WARFARIN POTASSIUM [Concomitant]
     Route: 048
     Dates: start: 20130522
  4. CLOPIDOGREL SULFATE [Concomitant]
     Route: 048
     Dates: start: 20130525
  5. HEPARIN SODIUM [Concomitant]
     Route: 065
     Dates: start: 20130521, end: 20130529
  6. CILOSTAZOL [Concomitant]

REACTIONS (2)
  - Paresis [Recovering/Resolving]
  - Hepatic function abnormal [Recovering/Resolving]
